FAERS Safety Report 4842202-6 (Version None)
Quarter: 2005Q4

REPORT INFORMATION
  Report Type: 
  Country: None (occurrence: None)
  Receive Date: 20051129
  Receipt Date: 20051108
  Transmission Date: 20060501
  Serious: No
  Sender: FDA-Public Use
  Company Number: AU200511001117

PATIENT
  Sex: Male

DRUGS (5)
  1. OLANZAPINE [Suspect]
     Indication: BIPOLAR DISORDER
     Dosage: SEE IMAGE
     Dates: start: 20050601, end: 20050101
  2. OLANZAPINE [Suspect]
     Indication: BIPOLAR DISORDER
     Dosage: SEE IMAGE
     Dates: start: 20050101
  3. VALPROATE SODIUM [Concomitant]
  4. ASPIRIN [Concomitant]
  5. AURORIX /SWE/ (MOCLOBEMIDE) [Concomitant]

REACTIONS (1)
  - PLATELET COUNT DECREASED [None]
